FAERS Safety Report 5983825-0 (Version None)
Quarter: 2008Q4

REPORT INFORMATION
  Report Type: 
  Country: None (occurrence: None)
  Receive Date: 20081208
  Receipt Date: 20081202
  Transmission Date: 20090506
  Serious: Yes (Other)
  Sender: FDA-Public Use
  Company Number: US-JNJFOC-20081200728

PATIENT
  Age: 6 Year
  Sex: Female
  Weight: 24.04 kg

DRUGS (3)
  1. TYLENOL (CAPLET) [Suspect]
     Route: 048
  2. TYLENOL (CAPLET) [Suspect]
     Indication: PYREXIA
     Route: 048
  3. EPIPEN [Concomitant]
     Indication: FOOD ALLERGY

REACTIONS (1)
  - HALLUCINATION [None]
